FAERS Safety Report 12159775 (Version 1)
Quarter: 2016Q1

REPORT INFORMATION
  Report Type: Spontaneous
  Country: US (occurrence: None)
  Receive Date: 20160307
  Receipt Date: 20160307
  Transmission Date: 20160526
  Serious: Yes (Other)
  Sender: FDA-Public Use
  Company Number: None

PATIENT
  Age: 62 Year
  Sex: Male
  Weight: 79.38 kg

DRUGS (9)
  1. ROBAXIN [Concomitant]
     Active Substance: METHOCARBAMOL
  2. MOTRIN [Concomitant]
     Active Substance: IBUPROFEN
  3. FORTESTA [Suspect]
     Active Substance: TESTOSTERONE
     Indication: HYPOGONADISM
     Dosage: 4 PUMPS QD TRANSDERMAL
     Route: 062
     Dates: start: 20160108, end: 20160125
  4. LIPITOR [Concomitant]
     Active Substance: ATORVASTATIN CALCIUM
  5. ZESTRIL [Concomitant]
     Active Substance: LISINOPRIL
  6. VOLTAREN [Concomitant]
     Active Substance: DICLOFENAC SODIUM
  7. ZYRTEC [Concomitant]
     Active Substance: CETIRIZINE HYDROCHLORIDE
  8. NEXIUM [Concomitant]
     Active Substance: ESOMEPRAZOLE MAGNESIUM
  9. SYNTHROID [Concomitant]
     Active Substance: LEVOTHYROXINE SODIUM

REACTIONS (2)
  - Rash pruritic [None]
  - Acne [None]

NARRATIVE: CASE EVENT DATE: 20160124
